FAERS Safety Report 9714611 (Version 3)
Quarter: 2014Q1

REPORT INFORMATION
  Report Type: Spontaneous
  Country: JP (occurrence: JP)
  Receive Date: 20131126
  Receipt Date: 20140306
  Transmission Date: 20141002
  Serious: Yes (Life-Threatening, Hospitalization, Other)
  Sender: FDA-Public Use
  Company Number: JP-B.I. PHARMACEUTICALS,INC./RIDGEFIELD-2013-BI-38658GD

PATIENT
  Age: 68 Year
  Sex: Female
  Weight: 46 kg

DRUGS (11)
  1. LINAGLIPTIN [Suspect]
     Indication: DIABETES MELLITUS
     Dosage: 5 MG
     Route: 048
  2. MICARDIS [Suspect]
     Indication: HYPERTENSION
     Dosage: 40 MG
     Route: 048
     Dates: end: 20130708
  3. AMARYL [Suspect]
     Indication: DIABETES MELLITUS
     Dosage: 1 MG
     Route: 048
     Dates: end: 20130708
  4. DIAMOX [Suspect]
     Indication: ANGLE CLOSURE GLAUCOMA
     Dosage: 500 MG
     Route: 065
     Dates: start: 20130706, end: 20130708
  5. MANNITOL [Suspect]
     Indication: ANGLE CLOSURE GLAUCOMA
     Dosage: 900 MG
     Route: 065
     Dates: start: 20130706, end: 20130707
  6. DIART [Concomitant]
     Indication: PRODUCT USED FOR UNKNOWN INDICATION
     Dosage: 30 MG
     Route: 048
     Dates: end: 20130708
  7. K PREPARATION [Concomitant]
     Indication: ANGLE CLOSURE GLAUCOMA
     Route: 065
  8. LIVALO [Concomitant]
     Indication: PRODUCT USED FOR UNKNOWN INDICATION
     Dosage: 2 MG
     Route: 048
     Dates: end: 20130708
  9. ASPARA K [Concomitant]
     Indication: GLAUCOMA
     Route: 065
     Dates: start: 20130706, end: 20130708
  10. FERROMIA [Concomitant]
     Indication: PRODUCT USED FOR UNKNOWN INDICATION
     Route: 065
     Dates: end: 20130708
  11. MYSLEE [Concomitant]
     Indication: PRODUCT USED FOR UNKNOWN INDICATION
     Route: 065

REACTIONS (9)
  - Renal failure acute [Not Recovered/Not Resolved]
  - Angle closure glaucoma [Unknown]
  - Headache [Unknown]
  - Altered state of consciousness [Recovered/Resolved]
  - Hyponatraemia [Recovered/Resolved]
  - Hypoglycaemia [Recovered/Resolved]
  - Prerenal failure [Not Recovered/Not Resolved]
  - Dehydration [Unknown]
  - Polyuria [Unknown]
